FAERS Safety Report 7292870-7 (Version None)
Quarter: 2011Q1

REPORT INFORMATION
  Report Type: 
  Country: None (occurrence: None)
  Receive Date: 20110215
  Receipt Date: 20110204
  Transmission Date: 20110831
  Serious: Yes (Other)
  Sender: FDA-Public Use
  Company Number: PHHY2010US80061

PATIENT
  Sex: Female
  Weight: 121 kg

DRUGS (3)
  1. TAXOTERE [Suspect]
  2. CHEMOTHERAPEUTICS NOS [Concomitant]
  3. FEMARA [Suspect]
     Dosage: 2.5 MG, QD
     Route: 048
     Dates: start: 20091001, end: 20101101

REACTIONS (3)
  - NEOPLASM MALIGNANT [None]
  - NEOPLASM [None]
  - LUNG NEOPLASM [None]
